FAERS Safety Report 13847112 (Version 1)
Quarter: 2017Q3

REPORT INFORMATION
  Report Type: Spontaneous
  Country: JP (occurrence: JP)
  Receive Date: 20170808
  Receipt Date: 20170808
  Transmission Date: 20171127
  Serious: Yes (Other)
  Sender: FDA-Public Use
  Company Number: JP-BAUSCH-BL-2017-023428

PATIENT
  Age: 76 Year
  Sex: Female

DRUGS (3)
  1. NIFEDIPINE. [Suspect]
     Active Substance: NIFEDIPINE
     Indication: HYPERTENSION
     Route: 065
  2. RIFAMPICIN [Interacting]
     Active Substance: RIFAMPIN
     Indication: ACID FAST BACILLI INFECTION
     Route: 065
  3. BARNIDIPINE [Suspect]
     Active Substance: BARNIDIPINE
     Indication: HYPERTENSION
     Route: 065

REACTIONS (2)
  - Hypertension [Recovered/Resolved]
  - Drug interaction [Recovered/Resolved]
